FAERS Safety Report 20303452 (Version 1)
Quarter: 2022Q1

REPORT INFORMATION
  Report Type: Report from Study
  Country: AT (occurrence: AT)
  Receive Date: 20220106
  Receipt Date: 20220106
  Transmission Date: 20220423
  Serious: Yes (Death, Other)
  Sender: FDA-Public Use
  Company Number: AT-PFIZER INC-202200004182

PATIENT

DRUGS (1)
  1. HEPARIN SODIUM [Suspect]
     Active Substance: HEPARIN SODIUM
     Indication: Acute on chronic liver failure
     Dosage: UNK (PRERINSED WITH 5000-10000 IU OF UNFRACTIONATED HEPARIN)

REACTIONS (4)
  - Multiple organ dysfunction syndrome [Fatal]
  - Gastric haemorrhage [Unknown]
  - Epistaxis [Unknown]
  - Catheter site haemorrhage [Unknown]
